FAERS Safety Report 17424074 (Version 4)
Quarter: 2021Q3

REPORT INFORMATION
  Report Type: Spontaneous
  Country: US (occurrence: US)
  Receive Date: 20200217
  Receipt Date: 20210923
  Transmission Date: 20211014
  Serious: Yes (Other)
  Sender: FDA-Public Use
  Company Number: US-GILEAD-2020-0450656

PATIENT
  Age: 54 Year
  Sex: Male

DRUGS (40)
  1. METHYLPREDNISOLONE. [Concomitant]
     Active Substance: METHYLPREDNISOLONE
  2. MOMETASONE FUROATE. [Concomitant]
     Active Substance: MOMETASONE FUROATE
  3. GENTAK [Concomitant]
     Active Substance: GENTAMICIN SULFATE
  4. LIDOCAINE. [Concomitant]
     Active Substance: LIDOCAINE
  5. KALETRA [Concomitant]
     Active Substance: LOPINAVIR\RITONAVIR
  6. PANTOPRAZOLE [Concomitant]
     Active Substance: PANTOPRAZOLE
  7. OMEPRAZOLE. [Concomitant]
     Active Substance: OMEPRAZOLE
  8. METOPROLOL. [Concomitant]
     Active Substance: METOPROLOL
  9. PATADAY [Concomitant]
     Active Substance: OLOPATADINE HYDROCHLORIDE
  10. GENVOYA [Concomitant]
     Active Substance: COBICISTAT\ELVITEGRAVIR\EMTRICITABINE\TENOFOVIR ALAFENAMIDE FUMARATE
     Indication: HIV INFECTION
     Dosage: 1 DOSAGE FORM (150?150?200?10 MG), QD
     Dates: start: 201901
  11. CIPRO [Concomitant]
     Active Substance: CIPROFLOXACIN HYDROCHLORIDE
  12. ACYCLOVIR [ACICLOVIR] [Concomitant]
     Active Substance: ACYCLOVIR
  13. KETOCONAZOLE. [Concomitant]
     Active Substance: KETOCONAZOLE
  14. HYDROCODONE BITARTRATE AND ACETAMINOPHEN [Concomitant]
     Active Substance: ACETAMINOPHEN\HYDROCODONE BITARTRATE
  15. ZOLPIDEM TARTRATE. [Concomitant]
     Active Substance: ZOLPIDEM TARTRATE
  16. MYCOBUTIN [Concomitant]
     Active Substance: RIFABUTIN
  17. IRBESARTAN. [Concomitant]
     Active Substance: IRBESARTAN
  18. BLACK CURRANT OIL [RIBES NIGRUM OIL] [Concomitant]
  19. MILK THISTLE [SILYBUM MARIANUM] [Concomitant]
     Active Substance: DIETARY SUPPLEMENT\HERBALS\MILK THISTLE
  20. DOXYCYCLINE. [Concomitant]
     Active Substance: DOXYCYCLINE
  21. TRAMADOL. [Concomitant]
     Active Substance: TRAMADOL
  22. TEMAZEPAM. [Concomitant]
     Active Substance: TEMAZEPAM
  23. AMOXICILLIN. [Concomitant]
     Active Substance: AMOXICILLIN
  24. TRUVADA [Suspect]
     Active Substance: EMTRICITABINE\TENOFOVIR DISOPROXIL FUMARATE
     Indication: HIV INFECTION
     Dosage: 200?300 MG
     Route: 048
     Dates: start: 20130130, end: 20130824
  25. COENZYME Q10 [Concomitant]
     Active Substance: DIETARY SUPPLEMENT\UBIDECARENONE
  26. RED YEAST RICE [Concomitant]
     Active Substance: DIETARY SUPPLEMENT
  27. FLAGYL [Concomitant]
     Active Substance: METRONIDAZOLE\METRONIDAZOLE HYDROCHLORIDE
  28. AMOXICILLIN + CLAV. POTASSIUM [Concomitant]
     Active Substance: AMOXICILLIN\CLAVULANATE POTASSIUM
  29. STRIBILD [Suspect]
     Active Substance: COBICISTAT\ELVITEGRAVIR\EMTRICITABINE\TENOFOVIR DISOPROXIL FUMARATE
     Indication: HIV INFECTION
     Dosage: 1 DOSAGE FORM (150?150?200?300 MG), QD
     Route: 048
     Dates: start: 20131023, end: 20181022
  30. VITAMIN D [COLECALCIFEROL] [Concomitant]
     Active Substance: CHOLECALCIFEROL
  31. ATORVASTATIN CALCIUM. [Concomitant]
     Active Substance: ATORVASTATIN CALCIUM
  32. DESONIDE. [Concomitant]
     Active Substance: DESONIDE
  33. CLARITHROMYCIN. [Concomitant]
     Active Substance: CLARITHROMYCIN
  34. TRETINOIN. [Concomitant]
     Active Substance: TRETINOIN
  35. LISINOPRIL. [Concomitant]
     Active Substance: LISINOPRIL
  36. TINIDAZOLE. [Concomitant]
     Active Substance: TINIDAZOLE
  37. FENOFIBRATE. [Concomitant]
     Active Substance: FENOFIBRATE
  38. OMEGA?3 FATTY ACIDS [Concomitant]
     Active Substance: OMEGA-3 FATTY ACIDS
  39. ASPIRIN EC [Concomitant]
     Active Substance: ASPIRIN
  40. CLINDAMYCIN. [Concomitant]
     Active Substance: CLINDAMYCIN

REACTIONS (13)
  - Anxiety [Unknown]
  - Multiple fractures [Unknown]
  - Anhedonia [Unknown]
  - Pain [Not Recovered/Not Resolved]
  - Atrophy [Not Recovered/Not Resolved]
  - Dysmorphism [Not Recovered/Not Resolved]
  - Rib fracture [Not Recovered/Not Resolved]
  - Bone density decreased [Unknown]
  - Asthenia [Not Recovered/Not Resolved]
  - Economic problem [Unknown]
  - Chronic kidney disease [Not Recovered/Not Resolved]
  - Renal failure [Unknown]
  - Emotional distress [Unknown]

NARRATIVE: CASE EVENT DATE: 2018
